FAERS Safety Report 6070268-7 (Version None)
Quarter: 2009Q1

REPORT INFORMATION
  Report Type: 
  Country: None (occurrence: None)
  Receive Date: 20090209
  Receipt Date: 20090127
  Transmission Date: 20090719
  Serious: Yes (Hospitalization)
  Sender: FDA-Public Use
  Company Number: US-ROCHE-609396

PATIENT
  Sex: Female

DRUGS (13)
  1. PEGASYS [Suspect]
     Indication: HEPATITIS C
     Dosage: FORM: PRE FILLED SYRINGE
     Route: 058
     Dates: start: 20080903, end: 20090101
  2. RIBAVIRIN [Suspect]
     Indication: HEPATITIS C
     Route: 065
  3. INSULIN [Concomitant]
  4. LASIX [Concomitant]
  5. ALDACTONE [Concomitant]
  6. LEVOXYL [Concomitant]
  7. VICODIN [Concomitant]
  8. CORGARD [Concomitant]
  9. SEROQUEL [Concomitant]
  10. ASPIRIN [Concomitant]
  11. AMLODIPINE [Concomitant]
  12. SELEXID [Concomitant]
  13. SELEXID [Concomitant]

REACTIONS (2)
  - ARTERIAL STENOSIS [None]
  - PERIPHERAL ISCHAEMIA [None]
